FAERS Safety Report 7127219-3 (Version None)
Quarter: 2010Q4

REPORT INFORMATION
  Report Type: 
  Country: None (occurrence: None)
  Receive Date: 20101129
  Receipt Date: 20100308
  Transmission Date: 20110411
  Serious: No
  Sender: FDA-Public Use
  Company Number: US-PFIZER INC-2010031595

PATIENT
  Sex: Male
  Weight: 86.2 kg

DRUGS (5)
  1. VIAGRA [Suspect]
     Indication: ERECTILE DYSFUNCTION
     Dosage: 50 MG, AS NEEDED
     Dates: start: 20080101
  2. VIAGRA [Suspect]
     Dosage: 100 MG, AS NEEDED
     Dates: start: 20090101
  3. CLONAZEPAM [Concomitant]
     Dosage: UNK
  4. RISPERIDONE [Concomitant]
     Dosage: UNK
  5. LITHIUM CARBONATE [Concomitant]
     Dosage: UNK

REACTIONS (2)
  - CHROMATOPSIA [None]
  - DRUG INEFFECTIVE [None]
